FAERS Safety Report 21949828 (Version 17)
Quarter: 2025Q4

REPORT INFORMATION
  Report Type: Report from Study
  Country: CN (occurrence: CN)
  Receive Date: 20230203
  Receipt Date: 20251231
  Transmission Date: 20260117
  Serious: Yes (Hospitalization, Other)
  Sender: TAKEDA
  Company Number: CN-TAKEDA-2022TUS088606

PATIENT
  Age: 79 Year
  Sex: Female
  Weight: 44 kg

DRUGS (14)
  1. IXAZOMIB [Suspect]
     Active Substance: IXAZOMIB
     Indication: Plasma cell myeloma
     Dosage: 3 MILLIGRAM, 1/WEEK
     Dates: start: 20211229
  2. BUDESONIDE [Concomitant]
     Active Substance: BUDESONIDE
     Indication: Nasopharyngitis
     Dosage: 64 MICROGRAM, BID
     Dates: start: 20211207
  3. ESOMEPRAZOLE MAGNESIUM [Concomitant]
     Active Substance: ESOMEPRAZOLE MAGNESIUM
     Indication: Gastric ulcer
     Dosage: 20 MILLIGRAM, QD
     Dates: start: 20211207
  4. ESOMEPRAZOLE MAGNESIUM [Concomitant]
     Active Substance: ESOMEPRAZOLE MAGNESIUM
     Indication: Gastritis
  5. ACYCLOVIR [Concomitant]
     Active Substance: ACYCLOVIR
     Indication: Herpes zoster
     Dosage: 0.2 GRAM, TID
     Dates: start: 20211228
  6. FLUCONAZOLE [Concomitant]
     Active Substance: FLUCONAZOLE
     Indication: Pneumonia
     Dosage: 150 MILLIGRAM, QD
     Dates: start: 20210815
  7. GABAPENTIN [Concomitant]
     Active Substance: GABAPENTIN
     Indication: Post herpetic neuralgia
     Dosage: 0.3 GRAM, TID
     Dates: start: 20211216
  8. COMPOUND POLYMYXIN B [Concomitant]
     Indication: Prophylaxis
     Dosage: UNK UNK, BID
     Dates: start: 2021
  9. URSODIOL [Concomitant]
     Active Substance: URSODIOL
     Indication: Prophylaxis
     Dosage: 250 MILLIGRAM, QD
     Dates: start: 20220121
  10. ASPIRIN [Concomitant]
     Active Substance: ASPIRIN
     Dosage: 100 MILLIGRAM, QD
     Dates: start: 20220729
  11. POTASSIUM CHLORIDE [Concomitant]
     Active Substance: POTASSIUM CHLORIDE
     Indication: Hypokalaemia
     Dosage: 2 GRAM, TID
     Dates: start: 20220121, end: 20220217
  12. CALCIUM CARBONATE [Concomitant]
     Active Substance: CALCIUM CARBONATE
     Indication: Osteoporosis
     Dosage: 0.6 GRAM, QD
     Dates: start: 20210622
  13. CYCLOPHOSPHAMIDE [Concomitant]
     Active Substance: CYCLOPHOSPHAMIDE
     Indication: Plasma cell myeloma
     Dosage: 300 MILLIGRAM, QD
     Dates: start: 20220108, end: 20220108
  14. DEXAMETHASONE [Concomitant]
     Active Substance: DEXAMETHASONE
     Indication: Plasma cell myeloma
     Dosage: 20 MILLIGRAM, QD
     Dates: start: 20220107, end: 20220108

REACTIONS (7)
  - Gastroenteritis [Recovering/Resolving]
  - Hypokalaemia [Recovering/Resolving]
  - Blood glucose increased [Recovered/Resolved]
  - Anaemia [Recovering/Resolving]
  - Herpes zoster [Recovering/Resolving]
  - Diarrhoea [Recovering/Resolving]
  - Off label use [Unknown]

NARRATIVE: CASE EVENT DATE: 20211230
